FAERS Safety Report 9976223 (Version 1)
Quarter: 2014Q1

REPORT INFORMATION
  Report Type: Spontaneous
  Country: US (occurrence: US)
  Receive Date: 20140306
  Receipt Date: 20140306
  Transmission Date: 20141002
  Serious: No
  Sender: FDA-Public Use
  Company Number: US-ABBVIE-13P-163-1164243-00

PATIENT
  Age: 24 Year
  Sex: Female
  Weight: 63.56 kg

DRUGS (4)
  1. HUMIRA [Suspect]
     Indication: CROHN^S DISEASE
     Dates: start: 201210, end: 201210
  2. HUMIRA [Suspect]
     Dates: start: 201210, end: 201210
  3. HUMIRA [Suspect]
  4. HUMIRA [Suspect]
     Dates: start: 20131026, end: 20131026

REACTIONS (2)
  - Epigastric discomfort [Not Recovered/Not Resolved]
  - Gastric dilatation [Not Recovered/Not Resolved]
